FAERS Safety Report 15920909 (Version 1)
Quarter: 2019Q1

REPORT INFORMATION
  Report Type: Spontaneous
  Country: ES (occurrence: ES)
  Receive Date: 20190205
  Receipt Date: 20190205
  Transmission Date: 20190417
  Serious: Yes (Other)
  Sender: FDA-Public Use
  Company Number: PHHY2019ES022603

PATIENT
  Age: 36 Year
  Sex: Female
  Weight: 70 kg

DRUGS (4)
  1. SUCCINYLCHOLINE CHLORIDE. [Suspect]
     Active Substance: SUCCINYLCHOLINE CHLORIDE
     Indication: PRODUCT USED FOR UNKNOWN INDICATION
     Dosage: UNK
     Route: 065
  2. BUPIVACAINE HYDROCHLORIDE. [Suspect]
     Active Substance: BUPIVACAINE HYDROCHLORIDE
     Indication: EPIDURAL ANALGESIA
     Dosage: UNK
     Route: 008
  3. PROPOFOL. [Suspect]
     Active Substance: PROPOFOL
     Indication: PRODUCT USED FOR UNKNOWN INDICATION
     Dosage: UNK
     Route: 042
  4. FENTANYL CITRATE. [Suspect]
     Active Substance: FENTANYL CITRATE
     Indication: EPIDURAL ANALGESIA
     Dosage: UNK
     Route: 040

REACTIONS (6)
  - Anaesthetic complication [Recovered/Resolved]
  - Sensory disturbance [Recovered/Resolved]
  - Hypotension [Recovered/Resolved]
  - Horner^s syndrome [Recovered/Resolved]
  - Dyspnoea [Recovered/Resolved]
  - Paresis [Recovered/Resolved]
